FAERS Safety Report 11060592 (Version 1)
Quarter: 2015Q2

REPORT INFORMATION
  Report Type: Spontaneous
  Country: US (occurrence: US)
  Receive Date: 20150423
  Receipt Date: 20150423
  Transmission Date: 20150821
  Serious: No
  Sender: FDA-Public Use
  Company Number: US-BAXTER-2015BAX019454

PATIENT
  Age: 53 Year
  Sex: Female
  Weight: 75.9 kg

DRUGS (1)
  1. SODIUM CHLORIDE 0.9% INTRAVENOUS INFUSION BP [Suspect]
     Active Substance: SODIUM CHLORIDE
     Indication: PRODUCT USED FOR UNKNOWN INDICATION
     Route: 042
     Dates: start: 20150331

REACTIONS (3)
  - Product container issue [Unknown]
  - Poor quality drug administered [Unknown]
  - No adverse event [Recovered/Resolved]

NARRATIVE: CASE EVENT DATE: 20150331
